FAERS Safety Report 14342781 (Version 1)
Quarter: 2017Q4

REPORT INFORMATION
  Report Type: Spontaneous
  Country: US (occurrence: US)
  Receive Date: 20171229
  Receipt Date: 20171229
  Transmission Date: 20180321
  Serious: Yes (Hospitalization)
  Sender: FDA-Public Use
  Company Number: None

PATIENT
  Sex: Male

DRUGS (7)
  1. PRILOSEC [Concomitant]
     Active Substance: OMEPRAZOLE MAGNESIUM
  2. BETHANECHOL [Concomitant]
     Active Substance: BETHANECHOL
  3. VITAMIN B6 [Concomitant]
     Active Substance: PYRIDOXINE HYDROCHLORIDE
  4. ACETAMIN [Concomitant]
     Active Substance: ACETAMINOPHEN
  5. CLONAZEPAM. [Concomitant]
     Active Substance: CLONAZEPAM
  6. TOPAMAX [Concomitant]
     Active Substance: TOPIRAMATE
  7. VIGABATRIN. [Suspect]
     Active Substance: VIGABATRIN
     Indication: SEIZURE
     Dosage: 10 ML TWICE A DAY, G-TUBE?
     Dates: start: 20171107

REACTIONS (1)
  - Hospitalisation [None]
